FAERS Safety Report 7266084-0 (Version None)
Quarter: 2011Q1

REPORT INFORMATION
  Report Type: 
  Country: None (occurrence: None)
  Receive Date: 20110131
  Receipt Date: 20100622
  Transmission Date: 20110831
  Serious: No
  Sender: FDA-Public Use
  Company Number: US-ABBOTT-09P-163-0498180-00

PATIENT
  Sex: Male
  Weight: 77.18 kg

DRUGS (1)
  1. LUPRON DEPOT [Suspect]
     Indication: PROSTATE CANCER
     Route: 030
     Dates: start: 20080101

REACTIONS (4)
  - HEADACHE [None]
  - INJECTION SITE PAIN [None]
  - DIZZINESS [None]
  - OEDEMA PERIPHERAL [None]
